FAERS Safety Report 18423538 (Version 1)
Quarter: 2020Q4

REPORT INFORMATION
  Report Type: Spontaneous
  Country: KR (occurrence: KR)
  Receive Date: 20201023
  Receipt Date: 20201023
  Transmission Date: 20210114
  Serious: Yes (Other)
  Sender: FDA-Public Use
  Company Number: KR-009507513-2010KOR007391

PATIENT
  Age: 67 Year
  Sex: Female

DRUGS (1)
  1. PEMBROLIZUMAB. [Suspect]
     Active Substance: PEMBROLIZUMAB
     Indication: ENDOMETRIAL CANCER
     Dosage: UNKNOWN

REACTIONS (9)
  - Hyponatraemia [Unknown]
  - Hypothyroidism [Unknown]
  - Hypopituitarism [Unknown]
  - Hypophysitis [Unknown]
  - Ill-defined disorder [Unknown]
  - Nausea [Unknown]
  - Vomiting [Unknown]
  - Hypophagia [Unknown]
  - Hyperkalaemia [Unknown]
